FAERS Safety Report 23998090 (Version 1)
Quarter: 2024Q2

REPORT INFORMATION
  Report Type: Spontaneous
  Country: FR (occurrence: FR)
  Receive Date: 20240621
  Receipt Date: 20240621
  Transmission Date: 20240716
  Serious: Yes (Other)
  Sender: FDA-Public Use
  Company Number: FR-STRAGNORDP-2024000360

PATIENT
  Age: 44 Year
  Sex: Female

DRUGS (1)
  1. LENALIDOMIDE [Suspect]
     Active Substance: LENALIDOMIDE
     Indication: Myelodysplastic syndrome
     Dosage: 5 MILLIGRAM
     Route: 065
     Dates: start: 202211

REACTIONS (3)
  - Rheumatoid arthritis [Unknown]
  - Neutropenia [Unknown]
  - Disease progression [Unknown]
